FAERS Safety Report 6751682-0 (Version None)
Quarter: 2010Q2

REPORT INFORMATION
  Report Type: 
  Country: None (occurrence: None)
  Receive Date: 20100602
  Receipt Date: 20100527
  Transmission Date: 20101027
  Serious: Yes (Death)
  Sender: FDA-Public Use
  Company Number: A0862264A

PATIENT
  Sex: Male

DRUGS (3)
  1. AVANDIA [Suspect]
     Indication: DRUG USE FOR UNKNOWN INDICATION
  2. AVANDARYL [Suspect]
     Indication: DRUG USE FOR UNKNOWN INDICATION
  3. AVANDAMET [Suspect]
     Indication: DRUG USE FOR UNKNOWN INDICATION

REACTIONS (3)
  - CARDIAC DISORDER [None]
  - DEATH [None]
  - MYOCARDIAL INFARCTION [None]
